FAERS Safety Report 7077516-5 (Version None)
Quarter: 2010Q4

REPORT INFORMATION
  Report Type: 
  Country: None (occurrence: None)
  Receive Date: 20101101
  Receipt Date: 20101022
  Transmission Date: 20110411
  Serious: Yes (Hospitalization)
  Sender: FDA-Public Use
  Company Number: BR-NOVOPROD-315552

PATIENT
  Age: 60 Year
  Sex: Male
  Weight: 98 kg

DRUGS (7)
  1. NOVOLIN N [Suspect]
     Indication: TYPE 2 DIABETES MELLITUS
     Dosage: UNK
     Dates: start: 19970101
  2. NOVOLIN R [Suspect]
     Indication: TYPE 2 DIABETES MELLITUS
     Dosage: UNK
     Dates: start: 19970101
  3. ATORVASTATIN                       /01326102/ [Concomitant]
     Indication: BLOOD CHOLESTEROL
     Dosage: 80 MG, QD
     Dates: start: 20040101
  4. METFORMIN HYDROCHLORIDE [Concomitant]
     Indication: DIABETES MELLITUS
     Dosage: 2550 MG, QD
     Route: 048
     Dates: start: 19980101
  5. CAPTOPRIL [Concomitant]
     Indication: BLOOD PRESSURE
     Dosage: 150 MG, QD
     Route: 048
     Dates: start: 19980101
  6. PROPANOL                           /00030001/ [Concomitant]
     Indication: BLOOD PRESSURE
     Dosage: 120 MG, QD
     Route: 048
     Dates: start: 20020101
  7. HYDROCHLOROTHIAZIDE [Concomitant]
     Indication: BLOOD PRESSURE
     Dosage: 25 MG, QD
     Route: 048
     Dates: start: 19900101

REACTIONS (3)
  - BLOOD GLUCOSE INCREASED [None]
  - DRUG INEFFECTIVE [None]
  - PANCREATITIS [None]
